FAERS Safety Report 8355263-7 (Version None)
Quarter: 2012Q2

REPORT INFORMATION
  Report Type: 
  Country: None (occurrence: None)
  Receive Date: 20120511
  Receipt Date: 20120508
  Transmission Date: 20120825
  Serious: Yes (Hospitalization)
  Sender: FDA-Public Use
  Company Number: US-ACTELION-A-US2012-60781

PATIENT

DRUGS (6)
  1. ADCIRCA [Concomitant]
  2. COUMADIN [Concomitant]
  3. VENTAVIS [Suspect]
     Indication: PULMONARY ARTERIAL HYPERTENSION
     Dosage: UNK
     Route: 055
     Dates: start: 20080930
  4. OXYGEN [Concomitant]
  5. TRACLEER [Suspect]
     Indication: PULMONARY ARTERIAL HYPERTENSION
     Dosage: UNK
     Route: 048
     Dates: start: 20091230
  6. LANOXIN [Concomitant]

REACTIONS (6)
  - HYPOTENSION [None]
  - CHEST PAIN [None]
  - FEELING HOT [None]
  - LOSS OF CONSCIOUSNESS [None]
  - ERYTHEMA [None]
  - OEDEMA PERIPHERAL [None]
